FAERS Safety Report 11451647 (Version 1)
Quarter: 2015Q3

REPORT INFORMATION
  Report Type: Spontaneous
  Country: US (occurrence: US)
  Receive Date: 20150903
  Receipt Date: 20150903
  Transmission Date: 20151125
  Serious: No
  Sender: FDA-Public Use
  Company Number: US-ROCHE-1024001

PATIENT
  Sex: Female

DRUGS (2)
  1. RIBAVIRIN. [Suspect]
     Active Substance: RIBAVIRIN
     Indication: HEPATITIS C
     Route: 065
     Dates: start: 20110911
  2. PEGASYS [Suspect]
     Active Substance: PEGINTERFERON ALFA-2A
     Indication: HEPATITIS C
     Route: 065
     Dates: start: 20110911

REACTIONS (16)
  - Depression [Recovering/Resolving]
  - Onychomadesis [Unknown]
  - Skin ulcer [Unknown]
  - Medical device complication [Unknown]
  - Scar [Unknown]
  - Onychalgia [Unknown]
  - Vomiting [Unknown]
  - Anger [Recovering/Resolving]
  - Mood swings [Unknown]
  - Weight decreased [Unknown]
  - Alopecia [Unknown]
  - Asthenia [Unknown]
  - Dyspnoea [Unknown]
  - Fatigue [Unknown]
  - Disturbance in sexual arousal [Unknown]
  - Transfusion [Unknown]
